FAERS Safety Report 12137420 (Version 3)
Quarter: 2016Q2

REPORT INFORMATION
  Report Type: Report from Study
  Country: US (occurrence: US)
  Receive Date: 20160302
  Receipt Date: 20160408
  Transmission Date: 20160815
  Serious: Yes (Death, Hospitalization, Other)
  Sender: FDA-Public Use
  Company Number: US-MALLINCKRODT-T201600567

PATIENT
  Age: 69 Year
  Sex: Male

DRUGS (8)
  1. BUMETANIDE. [Concomitant]
     Active Substance: BUMETANIDE
     Dosage: 1.0 MG
  2. CHLORTHALIDON [Concomitant]
     Dosage: 25MG
  3. REPOSITORY CORTICOTROPIN INJECTION [Suspect]
     Active Substance: CORTICOTROPIN
     Dosage: 80 UNITS 2 TIMES A WEEK
     Route: 058
  4. LEVOTHYROXIN [Concomitant]
     Active Substance: LEVOTHYROXINE
     Dosage: 50MCG
  5. SPIRONOLACTONE. [Concomitant]
     Active Substance: SPIRONOLACTONE
     Dosage: 25MG
  6. REPOSITORY CORTICOTROPIN INJECTION [Suspect]
     Active Substance: CORTICOTROPIN
     Indication: PROTEINURIA
     Dosage: 40 UNITS TWICE A WEEK
     Route: 030
     Dates: start: 20160118, end: 20160211
  7. ATORVASTATIN [Concomitant]
     Active Substance: ATORVASTATIN
     Dosage: 20MG
  8. LOSARTAN. [Concomitant]
     Active Substance: LOSARTAN
     Dosage: 50MG

REACTIONS (6)
  - Haematochezia [Recovered/Resolved]
  - Helicobacter infection [Recovered/Resolved]
  - Cardiac arrest [Fatal]
  - Renal failure [Fatal]
  - Loss of consciousness [Unknown]
  - Swelling [Not Recovered/Not Resolved]

NARRATIVE: CASE EVENT DATE: 2016
